FAERS Safety Report 20751436 (Version 15)
Quarter: 2023Q4

REPORT INFORMATION
  Report Type: Spontaneous
  Country: US (occurrence: US)
  Receive Date: 20220426
  Receipt Date: 20231229
  Transmission Date: 20240109
  Serious: No
  Sender: FDA-Public Use
  Company Number: US-PFIZER INC-2020510877

PATIENT
  Age: 68 Year
  Sex: Female

DRUGS (1)
  1. IBRANCE [Suspect]
     Active Substance: PALBOCICLIB
     Indication: Breast cancer female
     Dosage: TAKE 1 TABLET DAILY WITH FOOD ON DAYS 8-28 OF THE CHEMO CYCLE
     Route: 048

REACTIONS (2)
  - Neutrophil count abnormal [Unknown]
  - Full blood count decreased [Unknown]
